FAERS Safety Report 6836283-8 (Version None)
Quarter: 2010Q3

REPORT INFORMATION
  Report Type: 
  Country: None (occurrence: None)
  Receive Date: 20100713
  Receipt Date: 20090915
  Transmission Date: 20110219
  Serious: No
  Sender: FDA-Public Use
  Company Number: US-TYCO HEALTHCARE/MALLINCKRODT-T200901770

PATIENT
  Sex: Female
  Weight: 106.58 kg

DRUGS (12)
  1. OXYCODONE HCL [Suspect]
     Indication: BACK PAIN
     Dosage: TID, PRN
     Dates: start: 20060101, end: 20090101
  2. OXYCODONE HCL [Suspect]
     Indication: PAIN IN EXTREMITY
  3. METFORMIN [Concomitant]
     Indication: TYPE 2 DIABETES MELLITUS
     Dosage: UNK
     Dates: end: 20090601
  4. SYNTHROID [Concomitant]
     Indication: HYPOTHYROIDISM
     Dosage: .05 UNK, QD
  5. PREVACID [Concomitant]
     Indication: HIATUS HERNIA
     Dosage: 30 MG, BID
  6. PREVACID [Concomitant]
     Indication: REFLUX OESOPHAGITIS
  7. COUMADIN [Concomitant]
     Dosage: 2.5 MG, QD
  8. TOPAMAX [Concomitant]
     Dosage: 50 MG, QD
  9. INDERAL                            /00030001/ [Concomitant]
     Dosage: 10 MG, BID
  10. LYRICA [Concomitant]
     Indication: FIBROMYALGIA
     Dosage: 75 MG, TID
  11. FLEXERIL [Concomitant]
     Dosage: 10 MG, QHS
  12. LIPITOR [Concomitant]
     Dosage: 10 MG, QD

REACTIONS (3)
  - DRUG EFFECT DECREASED [None]
  - MIGRAINE [None]
  - TINNITUS [None]
